FAERS Safety Report 7415940-9 (Version None)
Quarter: 2011Q2

REPORT INFORMATION
  Report Type: 
  Country: None (occurrence: None)
  Receive Date: 20110414
  Receipt Date: 20110404
  Transmission Date: 20111010
  Serious: Yes (Other)
  Sender: FDA-Public Use
  Company Number: PHHY2011US28162

PATIENT
  Age: 31 Year
  Sex: Female

DRUGS (6)
  1. PROPYLTHIOURACIL [Suspect]
     Dosage: 50 MG DAILY
  2. FOLIC ACID [Concomitant]
     Dosage: UNK UKN, UNK
  3. PRENATAL VITAMINS [Concomitant]
     Dosage: UNK UKN, UNK
  4. PROPRANOLOL [Suspect]
     Dosage: UNK UKN, UNK
  5. FLUOXETINE [Concomitant]
     Dosage: UNK UKN, UNK
  6. METHIMAZOLE [Suspect]
     Dosage: UNK UKN, UNK

REACTIONS (3)
  - SMALL FOR DATES BABY [None]
  - DRUG EXPOSURE DURING PREGNANCY [None]
  - PREMATURE LABOUR [None]
